FAERS Safety Report 12966885 (Version 2)
Quarter: 2016Q4

REPORT INFORMATION
  Report Type: Report from Study
  Country: US (occurrence: US)
  Receive Date: 20161123
  Receipt Date: 20161130
  Transmission Date: 20170207
  Serious: No
  Sender: FDA-Public Use
  Company Number: US-AMGEN-USASL2016161875

PATIENT
  Age: 72 Year
  Sex: Female

DRUGS (2)
  1. INSULIN [Concomitant]
     Active Substance: INSULIN NOS
     Dosage: UNK
  2. ENBREL [Suspect]
     Active Substance: ETANERCEPT
     Indication: RHEUMATOID ARTHRITIS
     Dosage: 50 MG, ONCE A WEEK
     Route: 065
     Dates: start: 20161109

REACTIONS (9)
  - Mobility decreased [Unknown]
  - Wrong technique in product usage process [Unknown]
  - Balance disorder [Unknown]
  - Pain [Not Recovered/Not Resolved]
  - Therapy non-responder [Unknown]
  - Injection site haemorrhage [Unknown]
  - Fatigue [Unknown]
  - Underdose [Unknown]
  - Posture abnormal [Unknown]

NARRATIVE: CASE EVENT DATE: 201611
